FAERS Safety Report 5386830-0 (Version None)
Quarter: 2007Q3

REPORT INFORMATION
  Report Type: 
  Country: None (occurrence: None)
  Receive Date: 20070713
  Receipt Date: 20070706
  Transmission Date: 20080115
  Serious: Yes (Death, Hospitalization)
  Sender: FDA-Public Use
  Company Number: IT-ROXANE LABORATORIES, INC-2007-BP-16853RO

PATIENT
  Age: 76 Year
  Sex: Female

DRUGS (4)
  1. LEUCOVORIN CALCIUM [Suspect]
     Indication: CHEMOTHERAPY
     Dosage: 250 MG/M2 Q14D X 2 DOSES
     Dates: start: 20050201
  2. OXALIPLATIN [Suspect]
     Indication: CHEMOTHERAPY
     Dosage: 100 MG/M2 Q14D X 2 DOSES
     Dates: start: 20050201
  3. RALTITREXED [Suspect]
     Indication: CHEMOTHERAPY
     Dosage: 2.5 MG/M2 Q14D X 2 DOSES
     Dates: start: 20050201
  4. FLUOROURACIL [Suspect]
     Indication: CHEMOTHERAPY
     Dosage: 800 MG/M2 Q14D X 2 DOSES
     Dates: start: 20050201

REACTIONS (8)
  - ATRIAL FIBRILLATION [None]
  - LUNG CANCER METASTATIC [None]
  - MUCOSAL INFLAMMATION [None]
  - PAROTID GLAND ENLARGEMENT [None]
  - PYREXIA [None]
  - RECTAL CANCER [None]
  - SALIVARY GLAND CANCER [None]
  - SKIN NODULE [None]
